FAERS Safety Report 9595361 (Version 1)
Quarter: 2013Q4

REPORT INFORMATION
  Report Type: Spontaneous
  Country: US (occurrence: US)
  Receive Date: 20131004
  Receipt Date: 20131004
  Transmission Date: 20140711
  Serious: No
  Sender: FDA-Public Use
  Company Number: US-PURDUE-USA-2012-0093106

PATIENT
  Age: 30 Year
  Sex: Male

DRUGS (2)
  1. BUTRANS [Suspect]
     Indication: PAIN IN EXTREMITY
     Dosage: 20 MCG/HR, UNK
     Route: 062
     Dates: start: 20120913, end: 20120913
  2. PERCOCET                           /00446701/ [Concomitant]
     Indication: PAIN IN EXTREMITY
     Dosage: 15 MG, DAILY 3 1/2 PILLS
     Route: 048

REACTIONS (5)
  - Malaise [Recovered/Resolved]
  - Bradyphrenia [Recovered/Resolved]
  - Gait disturbance [Recovered/Resolved]
  - Pallor [Recovered/Resolved]
  - Vomiting [Recovered/Resolved]
